FAERS Safety Report 25981013 (Version 3)
Quarter: 2025Q4

REPORT INFORMATION
  Report Type: Report from Study
  Country: US (occurrence: None)
  Receive Date: 20251030
  Receipt Date: 20251204
  Transmission Date: 20260117
  Serious: Yes (Hospitalization, Other)
  Sender: UCB
  Company Number: UG-069-000008607

PATIENT
  Age: 36 Year

DRUGS (2)
  1. BIMEKIZUMAB [Suspect]
     Active Substance: BIMEKIZUMAB
     Indication: Hidradenitis
     Dosage: 320 MILLIGRAM, EV 2 WEEKS(QOW), THEN EVERY 4 WEEKS.
  2. KEPPRA [Suspect]
     Active Substance: LEVETIRACETAM
     Indication: Epilepsy
     Dosage: UNK

REACTIONS (6)
  - Neoplasm [Unknown]
  - Brain operation [Unknown]
  - Impaired healing [Unknown]
  - Hypokinesia [Unknown]
  - Injection site bruising [Recovering/Resolving]
  - Intentional dose omission [Unknown]
